FAERS Safety Report 4746560-2 (Version None)
Quarter: 2005Q3

REPORT INFORMATION
  Report Type: 
  Country: None (occurrence: None)
  Receive Date: 20050815
  Receipt Date: 20050801
  Transmission Date: 20060218
  Serious: Yes (Other)
  Sender: FDA-Public Use
  Company Number: USA0508104365

PATIENT
  Age: 62 Year
  Sex: Female

DRUGS (6)
  1. CYMBALTA [Suspect]
     Indication: DEPRESSION
     Dosage: 60 MG DAY
  2. HYZAAR [Concomitant]
  3. COMBIPATCH [Concomitant]
  4. PRILOSEC [Concomitant]
  5. IBUPROFEN [Concomitant]
  6. ALEVE [Concomitant]

REACTIONS (9)
  - ABNORMAL BEHAVIOUR [None]
  - ARTHRALGIA [None]
  - BACK PAIN [None]
  - BONE PAIN [None]
  - DRUG WITHDRAWAL SYNDROME [None]
  - FATIGUE [None]
  - HYPERHIDROSIS [None]
  - HYPERTENSION [None]
  - MIDDLE INSOMNIA [None]
